FAERS Safety Report 12753892 (Version 2)
Quarter: 2019Q3

REPORT INFORMATION
  Report Type: Spontaneous
  Country: US (occurrence: US)
  Receive Date: 20160915
  Receipt Date: 20190912
  Transmission Date: 20191004
  Serious: No
  Sender: FDA-Public Use
  Company Number: US-ASTELLAS-2015US046314

PATIENT
  Sex: Male

DRUGS (1)
  1. XTANDI [Suspect]
     Active Substance: ENZALUTAMIDE
     Indication: PROSTATE CANCER
     Dosage: 160 MG (4 X 40 MG), ONCE DAILY
     Route: 048
     Dates: start: 20151013

REACTIONS (2)
  - Influenza [Unknown]
  - Arthropod bite [Unknown]
